FAERS Safety Report 13352108 (Version 1)
Quarter: 2017Q1

REPORT INFORMATION
  Report Type: Spontaneous
  Country: US (occurrence: US)
  Receive Date: 20170320
  Receipt Date: 20170320
  Transmission Date: 20170429
  Serious: No
  Sender: FDA-Public Use
  Company Number: US-SA-2016SA118749

PATIENT
  Age: 67 Year
  Sex: Female

DRUGS (3)
  1. NASACORT ALLERGY 24HR [Suspect]
     Active Substance: TRIAMCINOLONE ACETONIDE
     Indication: SEASONAL ALLERGY
     Dosage: 1 SPRAY IN EACH NOSTRIL EACH MORNING
     Route: 065
     Dates: start: 201604
  2. ALLEGRA [Suspect]
     Active Substance: FEXOFENADINE HYDROCHLORIDE
     Route: 065
  3. NASACORT ALLERGY 24HR [Suspect]
     Active Substance: TRIAMCINOLONE ACETONIDE
     Indication: MITE ALLERGY
     Dosage: 1 SPRAY IN EACH NOSTRIL EACH MORNING
     Route: 065
     Dates: start: 201604

REACTIONS (2)
  - Headache [Not Recovered/Not Resolved]
  - Middle insomnia [Unknown]
